FAERS Safety Report 6733508-4 (Version None)
Quarter: 2010Q2

REPORT INFORMATION
  Report Type: 
  Country: None (occurrence: None)
  Receive Date: 20100520
  Receipt Date: 20100520
  Transmission Date: 20101027
  Serious: Yes (Hospitalization)
  Sender: FDA-Public Use
  Company Number: PHHO2009DE08066

PATIENT
  Sex: Female
  Weight: 72.5 kg

DRUGS (3)
  1. ALISKIREN ALI+TAB+HT [Suspect]
     Dosage: 150 MG
     Route: 048
     Dates: start: 20090512
  2. RAMIPRIL [Concomitant]
     Dosage: ONCE DAILY
  3. SIMVASTATIN [Concomitant]

REACTIONS (4)
  - ADENOMYOSIS [None]
  - HYPERTENSIVE CRISIS [None]
  - MENORRHAGIA [None]
  - UTERINE DILATION AND CURETTAGE [None]
